FAERS Safety Report 7773711-8 (Version None)
Quarter: 2011Q3

REPORT INFORMATION
  Report Type: 
  Country: None (occurrence: None)
  Receive Date: 20110920
  Receipt Date: 20110907
  Transmission Date: 20111222
  Serious: Yes (Death)
  Sender: FDA-Public Use
  Company Number: UTC-010057

PATIENT
  Age: 61 Year
  Sex: Female
  Weight: 77.27 kg

DRUGS (3)
  1. TYVASO [Suspect]
     Indication: PULMONARY ARTERIAL HYPERTENSION
     Dosage: 18-54 MICROGRAMS (4 IN 1 D),INHALATION
     Route: 055
     Dates: start: 20110203
  2. REVATIO [Concomitant]
  3. DIURETICS [Concomitant]

REACTIONS (1)
  - DEATH [None]
